FAERS Safety Report 8028284 (Version 13)
Quarter: 2013Q1

REPORT INFORMATION
  Report Type: Spontaneous
  Country: US (occurrence: None)
  Receive Date: 20110620
  Receipt Date: 20130305
  Transmission Date: 20140127
  Serious: Yes (Hospitalization, Other)
  Sender: FDA-Public Use
  Company Number: 2011028871

PATIENT
  Sex: Female
  Weight: 83.46 kg

DRUGS (33)
  1. HIZENTRA [Suspect]
     Indication: IMMUNODEFICIENCY COMMON VARIABLE
     Dates: start: 20101218
  2. PROBIOTIC (LACTOBACILLUS ACIDOPHILUS) [Concomitant]
  3. VICODIN [Concomitant]
  4. ZOFRAN [Concomitant]
  5. LORATIDINE [Concomitant]
  6. ESTRING [Concomitant]
  7. CLONAZEPAM [Concomitant]
  8. LEXAPRO [Concomitant]
  9. FLORINEF ACETATE [Concomitant]
  10. SYNTHROID [Concomitant]
  11. VITAMIN D [Concomitant]
  12. RESTASIS [Concomitant]
  13. VIVELLE DOT [Concomitant]
  14. LIDODERM [Concomitant]
  15. TYLENOL #3 (PANADEINE) [Concomitant]
  16. BACTROBAN [Concomitant]
  17. PREDNISONE [Concomitant]
  18. TYLENOL ARTHRITIS (PARACETAMOL) [Concomitant]
  19. OXYGEN (OXYGEN) [Concomitant]
  20. ZITHROMAX [Concomitant]
  21. PLAQUENIL [Concomitant]
  22. ADVAIR DISKUS [Concomitant]
  23. PRILOSEC [Concomitant]
  24. 24 HOUR OXYGEN (OXYGEN) [Concomitant]
  25. NEURONTIN (GABAPENTIN) [Concomitant]
  26. ACETAMINOPHEN (PARACETAMOL) [Concomitant]
  27. DIIPHENHYDRAMINE (DIPHENHYDRAMINE) [Concomitant]
  28. LIDOCAINE/PRILOCAINE (EMLA /00675501/) [Concomitant]
  29. EPI-PEN (EPINEPHRINE) [Concomitant]
  30. SKELAXIN (METAXALONE) [Concomitant]
  31. GUAIFENESIN (GUAIFENESIN) [Concomitant]
  32. LOTEMAX (LOTEPREDNOL ETABONATE) [Concomitant]
  33. OXYCONTIN (OXYCODONE HYDROCHLORIDE) [Concomitant]

REACTIONS (39)
  - Interstitial lung disease [None]
  - Wound [None]
  - Impaired healing [None]
  - Skin lesion [None]
  - Device related infection [None]
  - Influenza like illness [None]
  - Pain [None]
  - Chills [None]
  - Hyperhidrosis [None]
  - Headache [None]
  - Sinusitis [None]
  - Sinus congestion [None]
  - Sinus headache [None]
  - Paranasal sinus hypersecretion [None]
  - Paronychia [None]
  - Herpes virus infection [None]
  - Nausea [None]
  - Vomiting [None]
  - Respiratory tract infection [None]
  - Wheezing [None]
  - Dizziness [None]
  - Oropharyngeal pain [None]
  - Oral candidiasis [None]
  - Fatigue [None]
  - Oral pain [None]
  - Glossodynia [None]
  - Arthritis [None]
  - Condition aggravated [None]
  - Pyrexia [None]
  - Drug dose omission [None]
  - Dyspnoea [None]
  - Hypoxia [None]
  - Confusional state [None]
  - Pulmonary fibrosis [None]
  - Myalgia [None]
  - Lung disorder [None]
  - Otitis media [None]
  - Otitis externa [None]
  - Ear infection fungal [None]
